FAERS Safety Report 16552078 (Version 1)
Quarter: 2019Q3

REPORT INFORMATION
  Report Type: Spontaneous
  Country: GB (occurrence: GB)
  Receive Date: 20190710
  Receipt Date: 20190710
  Transmission Date: 20191004
  Serious: Yes (Hospitalization, Other)
  Sender: FDA-Public Use
  Company Number: PHHY2019GB156406

PATIENT
  Age: 3 Year
  Sex: Male
  Weight: 25.4 kg

DRUGS (2)
  1. SALBUTAMOL [Concomitant]
     Active Substance: ALBUTEROL
     Indication: PRODUCT USED FOR UNKNOWN INDICATION
     Dosage: UNK
     Route: 065
  2. MONTELUKAST [Suspect]
     Active Substance: MONTELUKAST SODIUM
     Indication: ASTHMA
     Dosage: 4 MG, QD (EVERY EVENING)
     Route: 048
     Dates: start: 20150524, end: 20190512

REACTIONS (11)
  - Paranoia [Unknown]
  - Irritability [Unknown]
  - Pruritus generalised [Unknown]
  - Thinking abnormal [Unknown]
  - Aggression [Recovered/Resolved]
  - Anxiety [Recovered/Resolved with Sequelae]
  - Anger [Recovered/Resolved]
  - Nightmare [Recovered/Resolved]
  - Obsessive-compulsive symptom [Unknown]
  - Tremor [Recovered/Resolved]
  - Psychomotor hyperactivity [Unknown]
